FAERS Safety Report 5040598-6 (Version None)
Quarter: 2006Q2

REPORT INFORMATION
  Report Type: 
  Country: None (occurrence: None)
  Receive Date: 20060626
  Receipt Date: 20060626
  Transmission Date: 20061013
  Serious: Yes (Hospitalization)
  Sender: FDA-Public Use
  Company Number: None

PATIENT
  Age: 48 Year
  Sex: Male
  Weight: 86.637 kg

DRUGS (3)
  1. AVASTIN [Suspect]
     Indication: TONSIL CANCER
     Dosage: 10 MG/KG   Q 2 WEEKS  IV
     Route: 042
     Dates: start: 20060517
  2. ERLOTINIB HYDROCHLORIDE [Suspect]
     Dosage: 100MG   EVERY DAY   ORALLY
     Route: 048
  3. RADIATION THERAPY [Concomitant]

REACTIONS (4)
  - COUGH [None]
  - MALAISE [None]
  - PYREXIA [None]
  - URINE FLOW DECREASED [None]
